FAERS Safety Report 8492770-0 (Version None)
Quarter: 2012Q3

REPORT INFORMATION
  Report Type: 
  Country: None (occurrence: None)
  Receive Date: 20120706
  Receipt Date: 20120702
  Transmission Date: 20120928
  Serious: Yes (Life-Threatening, Other)
  Sender: FDA-Public Use
  Company Number: ES-CELGENEUS-144-C5013-12070033

PATIENT
  Sex: Female

DRUGS (7)
  1. PREDNISONE [Suspect]
     Route: 065
     Dates: end: 20090421
  2. LENALIDOMIDE [Suspect]
     Route: 048
     Dates: end: 20090503
  3. MELPHALAN HYDROCHLORIDE [Suspect]
     Route: 065
     Dates: end: 20090421
  4. LENALIDOMIDE [Suspect]
     Indication: MULTIPLE MYELOMA
     Route: 048
  5. LENALIDOMIDE [Suspect]
     Indication: MULTIPLE MYELOMA
     Route: 048
     Dates: start: 20080915
  6. PREDNISONE [Suspect]
     Indication: MULTIPLE MYELOMA
     Route: 065
     Dates: start: 20080915
  7. MELPHALAN HYDROCHLORIDE [Suspect]
     Indication: MULTIPLE MYELOMA
     Route: 065
     Dates: start: 20080915

REACTIONS (1)
  - HEPATIC NEOPLASM MALIGNANT [None]
